FAERS Safety Report 23146057 (Version 1)
Quarter: 2023Q4

REPORT INFORMATION
  Report Type: Report from Study
  Country: MX (occurrence: MX)
  Receive Date: 20231104
  Receipt Date: 20231104
  Transmission Date: 20240110
  Serious: Yes (Other)
  Sender: FDA-Public Use
  Company Number: MX-002147023-NVSC2023MX235303

PATIENT
  Sex: Male
  Weight: 72 kg

DRUGS (2)
  1. EXFORGE HCT [Suspect]
     Active Substance: AMLODIPINE BESYLATE\HYDROCHLOROTHIAZIDE\VALSARTAN
     Indication: Hypertension
     Dosage: 1 DOSAGE FORM (5/160/12.5 MG), QD (STOPPED  STARTED APPROXIMATELY 1 ? YEAR AGO)
     Route: 048
     Dates: start: 2021
  2. EXFORGE HCT [Suspect]
     Active Substance: AMLODIPINE BESYLATE\HYDROCHLOROTHIAZIDE\VALSARTAN
     Dosage: 0.5 DOSAGE FORM, QD (5/160/12.5 MG) (STARTED APPROXIMATELY 1 ? YEAR AGO)
     Route: 048

REACTIONS (4)
  - Deafness [Unknown]
  - Influenza [Unknown]
  - Nasopharyngitis [Unknown]
  - Off label use [Unknown]
